FAERS Safety Report 15722079 (Version 1)
Quarter: 2018Q4

REPORT INFORMATION
  Report Type: Spontaneous
  Country: US (occurrence: US)
  Receive Date: 20181129
  Receipt Date: 20181129
  Transmission Date: 20190205
  Serious: Yes (Hospitalization)
  Sender: FDA-Public Use
  Company Number: None

PATIENT
  Sex: Female
  Weight: 58.4 kg

DRUGS (9)
  1. ONCASPAR [Suspect]
     Active Substance: PEGASPARGASE
  2. VINCRISTINE SULFATE. [Suspect]
     Active Substance: VINCRISTINE SULFATE
  3. PREDNISONE. [Suspect]
     Active Substance: PREDNISONE
     Dates: end: 20181117
  4. METHOTREXATE. [Suspect]
     Active Substance: METHOTREXATE
  5. METHOTREXATE. [Suspect]
     Active Substance: METHOTREXATE
     Dates: end: 20181102
  6. CYTARABINE. [Suspect]
     Active Substance: CYTARABINE
     Dates: end: 20181024
  7. PREDNISONE. [Suspect]
     Active Substance: PREDNISONE
  8. ONCASPAR [Suspect]
     Active Substance: PEGASPARGASE
     Dates: end: 20181029
  9. VINCRI STINE SULFATE [Suspect]
     Active Substance: VINCRISTINE SULFATE
     Dates: end: 20181116

REACTIONS (10)
  - Enterobacter test positive [None]
  - Candida test positive [None]
  - Decreased appetite [None]
  - Herpes simplex test positive [None]
  - Back pain [None]
  - Abdominal pain [None]
  - Blood pressure decreased [None]
  - Blood culture positive [None]
  - Odynophagia [None]
  - Abdominal pain upper [None]
